FAERS Safety Report 10306504 (Version 1)
Quarter: 2014Q3

REPORT INFORMATION
  Report Type: Spontaneous
  Country: SE (occurrence: SE)
  Receive Date: 20140715
  Receipt Date: 20140715
  Transmission Date: 20150326
  Serious: Yes (Hospitalization)
  Sender: FDA-Public Use
  Company Number: SE-BRISTOL-MYERS SQUIBB COMPANY-21169966

PATIENT
  Age: 72 Year
  Sex: Female

DRUGS (13)
  1. METOPROLOL [Concomitant]
     Active Substance: METOPROLOL
     Dosage: PROLONGED RELEASE TABLET
  2. NOVOMIX [Concomitant]
     Active Substance: INSULIN ASPART
     Dosage: 1DF: 30FLEXPEN 100 U / ML
  3. SALURES [Concomitant]
     Active Substance: BENDROFLUMETHIAZIDE
  4. COSOPT [Concomitant]
     Active Substance: DORZOLAMIDE HYDROCHLORIDE\TIMOLOL MALEATE
     Dosage: 1DF:20 MG / ML + 5 MG / ML EYE DROPS
  5. OXYNORM [Concomitant]
     Active Substance: OXYCODONE HYDROCHLORIDE
  6. CITALOPRAM [Concomitant]
     Active Substance: CITALOPRAM HYDROBROMIDE
  7. LOSARTAN [Concomitant]
     Active Substance: LOSARTAN
  8. ATORVASTATIN [Concomitant]
     Active Substance: ATORVASTATIN
  9. AMLODIPINE [Concomitant]
     Active Substance: AMLODIPINE BESYLATE
  10. XALATAN [Concomitant]
     Active Substance: LATANOPROST
     Dosage: 1DF: 50 MICROGRAMS / ML OF EYE DROPS
  11. ELIQUIS [Suspect]
     Active Substance: APIXABAN
     Indication: CEREBROVASCULAR ACCIDENT PROPHYLAXIS
     Dosage: TABLET
  12. METFORMIN [Concomitant]
     Active Substance: METFORMIN HYDROCHLORIDE
  13. ALVEDON [Concomitant]
     Active Substance: ACETAMINOPHEN

REACTIONS (3)
  - Cerebral haemorrhage [Recovered/Resolved with Sequelae]
  - Cerebral infarction [Recovered/Resolved with Sequelae]
  - Dilatation ventricular [Unknown]

NARRATIVE: CASE EVENT DATE: 20140516
